FAERS Safety Report 7602123-2 (Version None)
Quarter: 2011Q3

REPORT INFORMATION
  Report Type: 
  Country: None (occurrence: None)
  Receive Date: 20110711
  Receipt Date: 20110706
  Transmission Date: 20111222
  Serious: Yes (Disabling, Other)
  Sender: FDA-Public Use
  Company Number: JP-PFIZER INC-2011130603

PATIENT
  Age: 69 Year
  Sex: Male
  Weight: 85 kg

DRUGS (2)
  1. MEROPENEM [Concomitant]
     Dosage: UNK
     Dates: start: 20090601
  2. CLINDAMYCIN HCL [Suspect]
     Dosage: UNK
     Route: 042
     Dates: start: 20090601

REACTIONS (1)
  - RENAL IMPAIRMENT [None]
